FAERS Safety Report 5406245-6 (Version None)
Quarter: 2007Q3

REPORT INFORMATION
  Report Type: 
  Country: None (occurrence: None)
  Receive Date: 20070802
  Receipt Date: 20070802
  Transmission Date: 20080115
  Serious: No
  Sender: FDA-Public Use
  Company Number: None

PATIENT
  Sex: Male
  Weight: 81.4 kg

DRUGS (6)
  1. BEVACIZUMAB (RHUMAB VEGF) [Suspect]
     Dosage: 836 MG
     Dates: end: 20070726
  2. LEUCOVORIN CALCIUM [Suspect]
     Dosage: 1680 MG
     Dates: end: 20070726
  3. ELOXATIN [Suspect]
     Dosage: 358 MG
     Dates: end: 20070726
  4. FLUOROURACIL [Suspect]
     Dosage: 11712 MG
     Dates: end: 20070726
  5. COMPAZINE [Concomitant]
  6. IMODIUM [Concomitant]

REACTIONS (3)
  - AXILLARY VEIN THROMBOSIS [None]
  - OEDEMA PERIPHERAL [None]
  - SUBCLAVIAN VEIN THROMBOSIS [None]
